FAERS Safety Report 9704026 (Version 1)
Quarter: 2013Q4

REPORT INFORMATION
  Report Type: Spontaneous
  Country: US (occurrence: US)
  Receive Date: 20131122
  Receipt Date: 20131122
  Transmission Date: 20140711
  Serious: No
  Sender: FDA-Public Use
  Company Number: US-BRISTOL-MYERS SQUIBB COMPANY-19135912

PATIENT
  Sex: Male

DRUGS (1)
  1. GLUCOPHAGE XR TABS [Suspect]
     Dosage: PROLONGED-RELEASE TABLET
     Dates: start: 201210

REACTIONS (1)
  - Medication residue present [Unknown]
